FAERS Safety Report 8032883-0 (Version None)
Quarter: 2012Q1

REPORT INFORMATION
  Report Type: 
  Country: None (occurrence: None)
  Receive Date: 20120110
  Receipt Date: 20120105
  Transmission Date: 20120608
  Serious: Yes (Other)
  Sender: FDA-Public Use
  Company Number: CA-PFIZER INC-2012004453

PATIENT
  Sex: Female

DRUGS (2)
  1. CITALOPRAM [Concomitant]
     Dosage: UNK
  2. VARENICLINE TARTRATE [Suspect]
     Indication: SMOKING CESSATION THERAPY
     Dosage: UNK

REACTIONS (3)
  - MIGRAINE [None]
  - DEPRESSED MOOD [None]
  - EMOTIONAL POVERTY [None]
